FAERS Safety Report 6848298-4 (Version None)
Quarter: 2010Q3

REPORT INFORMATION
  Report Type: 
  Country: None (occurrence: None)
  Receive Date: 20100714
  Receipt Date: 20100630
  Transmission Date: 20110219
  Serious: Yes (Other)
  Sender: FDA-Public Use
  Company Number: 1000012098

PATIENT
  Age: 67 Year
  Sex: Male

DRUGS (6)
  1. MEMANTINE HCL [Suspect]
     Indication: DEMENTIA ALZHEIMER'S TYPE
     Dosage: 20 MG (20 MG, 1 IN 1 D), ORAL
     Route: 048
     Dates: start: 20070731, end: 20080305
  2. DONEPEZIL HCL [Concomitant]
  3. TRAZODONE [Concomitant]
  4. FUROSEMIDE [Concomitant]
  5. BROMAZEPAM [Concomitant]
  6. WARFARIN [Concomitant]

REACTIONS (7)
  - AGITATION [None]
  - EPILEPSY [None]
  - FALL [None]
  - HEAD INJURY [None]
  - PULMONARY EMBOLISM [None]
  - STAPHYLOCOCCAL INFECTION [None]
  - THROMBOPHLEBITIS [None]
